FAERS Safety Report 5493126-5 (Version None)
Quarter: 2007Q4

REPORT INFORMATION
  Report Type: 
  Country: None (occurrence: None)
  Receive Date: 20071022
  Receipt Date: 20071022
  Transmission Date: 20080405
  Serious: No
  Sender: FDA-Public Use
  Company Number: None

PATIENT
  Sex: Male
  Weight: 79.38 kg

DRUGS (1)
  1. TEMOZOLOMIDE [Suspect]
     Dosage: 290 MG

REACTIONS (1)
  - RASH ERYTHEMATOUS [None]
